FAERS Safety Report 5831592-3 (Version None)
Quarter: 2008Q3

REPORT INFORMATION
  Report Type: 
  Country: None (occurrence: None)
  Receive Date: 20080730
  Receipt Date: 20080716
  Transmission Date: 20090109
  Serious: Yes (Hospitalization)
  Sender: FDA-Public Use
  Company Number: 2008AL008525

PATIENT
  Age: 80 Year
  Sex: Male
  Weight: 68.0396 kg

DRUGS (1)
  1. DIGOXIN [Suspect]
     Indication: CARDIAC DISORDER
     Dosage: 0.25MG DAILY PO
     Route: 048
     Dates: start: 20070101

REACTIONS (2)
  - HEART RATE DECREASED [None]
  - PULMONARY OEDEMA [None]
